FAERS Safety Report 5512473-1 (Version None)
Quarter: 2007Q4

REPORT INFORMATION
  Report Type: 
  Country: None (occurrence: None)
  Receive Date: 20071112
  Receipt Date: 20070328
  Transmission Date: 20080405
  Serious: No
  Sender: FDA-Public Use
  Company Number: A0645056A

PATIENT
  Sex: Female

DRUGS (3)
  1. AVANDAMET [Suspect]
     Dosage: 2MG TWICE PER DAY
  2. GLUCOPHAGE [Concomitant]
  3. MAXZIDE [Concomitant]

REACTIONS (2)
  - DRUG INEFFECTIVE [None]
  - ILL-DEFINED DISORDER [None]
